FAERS Safety Report 6431533-4 (Version None)
Quarter: 2009Q4

REPORT INFORMATION
  Report Type: 
  Country: None (occurrence: None)
  Receive Date: 20091106
  Receipt Date: 20091026
  Transmission Date: 20100525
  Serious: Yes (Other)
  Sender: FDA-Public Use
  Company Number: GB-JNJCH-2009028648

PATIENT
  Sex: Male

DRUGS (1)
  1. NICORETTE PATCH 5 MG [Suspect]
     Indication: DRUG USE FOR UNKNOWN INDICATION
     Route: 062

REACTIONS (4)
  - AGGRESSION [None]
  - ANXIETY [None]
  - DEPRESSED MOOD [None]
  - IRRITABILITY [None]
